FAERS Safety Report 5093462-0 (Version None)
Quarter: 2006Q3

REPORT INFORMATION
  Report Type: 
  Country: None (occurrence: None)
  Receive Date: 20060828
  Receipt Date: 20060808
  Transmission Date: 20061208
  Serious: Yes (Other)
  Sender: FDA-Public Use
  Company Number: S06-FRA-02369-01

PATIENT
  Age: 38 Year
  Sex: Female
  Weight: 55 kg

DRUGS (1)
  1. SEROPLEX (ESCITALOPRAM) [Suspect]
     Dosage: 15 MG QD PO
     Route: 048
     Dates: start: 20050922, end: 20060531

REACTIONS (2)
  - DISEASE RECURRENCE [None]
  - RETINAL VEIN OCCLUSION [None]
